FAERS Safety Report 10063524 (Version 1)
Quarter: 2014Q2

REPORT INFORMATION
  Report Type: Spontaneous
  Country: US (occurrence: US)
  Receive Date: 20140407
  Receipt Date: 20140407
  Transmission Date: 20141212
  Serious: Yes (Other)
  Sender: FDA-Public Use
  Company Number: US-ELI_LILLY_AND_COMPANY-US201404000561

PATIENT
  Sex: Female

DRUGS (14)
  1. EVISTA [Suspect]
     Indication: OSTEOPOROSIS
     Dosage: 60 MG, QD
     Route: 065
     Dates: start: 1999
  2. CAPTOPRIL [Concomitant]
     Route: 005
  3. PREDNISONE [Concomitant]
     Route: 065
  4. CALCIUM [Concomitant]
     Route: 065
  5. EVOXAC [Concomitant]
     Dosage: UNK UNK, UNKNOWN
     Route: 065
  6. TURMERIC [Concomitant]
     Route: 065
  7. SELENIUM [Concomitant]
     Dosage: UNK, UNKNOWN
     Route: 065
  8. BIOTIN [Concomitant]
     Route: 065
  9. LUTEIN                             /01638501/ [Concomitant]
     Route: 065
  10. MELATONIN [Concomitant]
     Route: 065
  11. MAGNESIUM [Concomitant]
     Route: 065
  12. ZINC [Concomitant]
     Route: 065
  13. GINGER                             /01646602/ [Concomitant]
     Route: 065
  14. COENZYME Q10 [Concomitant]

REACTIONS (3)
  - Blood pressure systolic increased [Unknown]
  - Endometrial hypertrophy [Unknown]
  - Fatigue [Unknown]
